FAERS Safety Report 5508819-0 (Version None)
Quarter: 2007Q4

REPORT INFORMATION
  Report Type: 
  Country: None (occurrence: None)
  Receive Date: 20071107
  Receipt Date: 20071029
  Transmission Date: 20080405
  Serious: Yes (Life-Threatening, Disabling)
  Sender: FDA-Public Use
  Company Number: JP-JNJFOC-20071100260

PATIENT
  Sex: Male

DRUGS (2)
  1. FINIBAX [Suspect]
     Indication: SEPSIS
     Route: 041
  2. FLUMARIN [Concomitant]
     Indication: SEPSIS
     Route: 065

REACTIONS (3)
  - DISSEMINATED INTRAVASCULAR COAGULATION [None]
  - HEPATIC FUNCTION ABNORMAL [None]
  - RENAL IMPAIRMENT [None]
